FAERS Safety Report 10241405 (Version 1)
Quarter: 2014Q2

REPORT INFORMATION
  Report Type: Spontaneous
  Country: FR (occurrence: None)
  Receive Date: 20140613
  Receipt Date: 20140613
  Transmission Date: 20141212
  Serious: Yes (Death)
  Sender: FDA-Public Use
  Company Number: 2014COR00008

PATIENT
  Age: 60 Year
  Sex: Female

DRUGS (8)
  1. ALPRAZOLAM (ALPRAZOLAM) [Suspect]
  2. QUETIAPINE (QUETIAPINE) [Suspect]
  3. ZOPICLONE (ZOPICLONE) [Suspect]
  4. BROMAZEPAM (BROMAZEPAM) [Suspect]
  5. OXAZEPAM (OXAZEPAM) [Suspect]
  6. LORMETAZEPAM (LORMETAZEPAM) [Suspect]
  7. LORAZEPAM (LORAZEPAM) [Suspect]
  8. CYAMEMAZINE [Suspect]

REACTIONS (3)
  - Completed suicide [None]
  - Overdose [None]
  - Toxicity to various agents [None]
